FAERS Safety Report 4393926-9 (Version None)
Quarter: 2004Q4

REPORT INFORMATION
  Report Type: 
  Country: None (occurrence: None)
  Receive Date: 20040702
  Receipt Date: 20040621
  Transmission Date: 20050328
  Serious: Yes (Disabling, Other)
  Sender: FDA-Public Use
  Company Number: SUSI-2004-00361

PATIENT
  Age: 9 Year
  Sex: Male

DRUGS (2)
  1. ADDERALL XR 10 [Suspect]
     Indication: ATTENTION DEFICIT/HYPERACTIVITY DISORDER
     Dosage: 20 MG, 1X/DAY: QD
     Dates: start: 20020801
  2. ADDERALL 10 [Suspect]
     Indication: ATTENTION DEFICIT/HYPERACTIVITY DISORDER
     Dates: start: 19980101, end: 20020801

REACTIONS (5)
  - BLINDNESS [None]
  - DEAFNESS BILATERAL [None]
  - EYE HAEMORRHAGE [None]
  - GLAUCOMA [None]
  - RETINAL HAEMORRHAGE [None]
